FAERS Safety Report 11732700 (Version 1)
Quarter: 2015Q4

REPORT INFORMATION
  Report Type: Spontaneous
  Country: US (occurrence: US)
  Receive Date: 20151110
  Receipt Date: 20151110
  Transmission Date: 20160304
  Serious: No
  Sender: FDA-Public Use
  Company Number: US-ELI_LILLY_AND_COMPANY-US201204009001

PATIENT
  Age: 82 Year
  Sex: Female

DRUGS (15)
  1. VITAMINS NOS [Concomitant]
     Active Substance: VITAMINS
  2. SYNTHROID [Concomitant]
     Active Substance: LEVOTHYROXINE SODIUM
  3. CALCITAR [Concomitant]
  4. ADVAIR DISKUS [Concomitant]
     Active Substance: FLUTICASONE PROPIONATE\SALMETEROL XINAFOATE
  5. PROVENTIL                               /USA/ [Concomitant]
  6. CENTRUM [Concomitant]
     Active Substance: VITAMINS
  7. PREVIDENT [Concomitant]
     Active Substance: SODIUM FLUORIDE
  8. DONNATAL [Concomitant]
     Active Substance: ATROPINE SULFATE\HYOSCYAMINE SULFATE\PHENOBARBITAL\SCOPOLAMINE HYDROBROMIDE
  9. FORTEO [Suspect]
     Active Substance: TERIPARATIDE
     Indication: OSTEOPOROSIS
     Dosage: 20 UG, QD
     Route: 065
     Dates: start: 201008
  10. FORTEO [Suspect]
     Active Substance: TERIPARATIDE
     Dosage: 20 UG, QD
     Route: 065
     Dates: start: 201202
  11. ENALAPRIL [Concomitant]
     Active Substance: ENALAPRIL
  12. PRILOSEC [Concomitant]
     Active Substance: OMEPRAZOLE MAGNESIUM
  13. CALCIUM [Concomitant]
     Active Substance: CALCIUM
  14. METAMUCIL [Concomitant]
     Active Substance: PLANTAGO SEED
  15. MAALOX ANTACID [Concomitant]
     Active Substance: ALUMINUM HYDROXIDE\DIMETHICONE\MAGNESIUM HYDROXIDE

REACTIONS (6)
  - Blood pressure increased [Unknown]
  - Localised infection [Unknown]
  - Squamous cell carcinoma of skin [Unknown]
  - Panic reaction [Unknown]
  - Erythema [Unknown]
  - Drug dose omission [Unknown]

NARRATIVE: CASE EVENT DATE: 201203
